FAERS Safety Report 8947173 (Version 1)
Quarter: 2012Q4

REPORT INFORMATION
  Report Type: 
  Country: US (occurrence: US)
  Receive Date: 20121205
  Receipt Date: 20121205
  Transmission Date: 20130627
  Serious: Yes (Other)
  Sender: FDA-Public Use
  Company Number: US-PFIZER INC-2012302165

PATIENT
  Age: 64 Year
  Sex: Male
  Weight: 102 kg

DRUGS (4)
  1. VIAGRA [Suspect]
     Indication: HEART DISORDER
     Dosage: 25 mg, daily
     Dates: end: 20121128
  2. WARFARIN [Concomitant]
     Indication: MITRAL VALVE REPLACEMENT
     Dosage: 7 mg, daily
  3. BYSTOLIC [Concomitant]
     Indication: MITRAL VALVE REPLACEMENT
     Dosage: 5 mg, daily
  4. ASPIRIN [Concomitant]
     Indication: MITRAL VALVE REPLACEMENT
     Dosage: 81 mg, daily

REACTIONS (2)
  - Sudden hearing loss [Not Recovered/Not Resolved]
  - Off label use [Recovered/Resolved]
